FAERS Safety Report 12405128 (Version 1)
Quarter: 2016Q2

REPORT INFORMATION
  Report Type: Report from Study
  Country: US (occurrence: US)
  Receive Date: 20160525
  Receipt Date: 20160525
  Transmission Date: 20160815
  Serious: Yes (Hospitalization)
  Sender: FDA-Public Use
  Company Number: US-ACTELION-A-US2016-132632

PATIENT
  Age: 86 Year
  Sex: Female

DRUGS (20)
  1. WARFARIN [Concomitant]
     Active Substance: WARFARIN
  2. LEVOTHYROXINE. [Concomitant]
     Active Substance: LEVOTHYROXINE
  3. METOLAZONE. [Concomitant]
     Active Substance: METOLAZONE
  4. PREDNISONE. [Concomitant]
     Active Substance: PREDNISONE
  5. TRACLEER [Suspect]
     Active Substance: BOSENTAN
     Indication: PULMONARY ARTERIAL HYPERTENSION
     Dosage: 125 MG, UNK
     Route: 048
  6. HYDROCODONE BITARTRATE AND ACETAMINOPHEN [Concomitant]
     Active Substance: ACETAMINOPHEN\HYDROCODONE BITARTRATE
  7. SPIRONOLACTONE. [Concomitant]
     Active Substance: SPIRONOLACTONE
  8. FOLIC ACID. [Concomitant]
     Active Substance: FOLIC ACID
  9. CLINDAMYCIN [Concomitant]
     Active Substance: CLINDAMYCIN\CLINDAMYCIN PHOSPHATE
  10. DIGOX [Concomitant]
     Active Substance: DIGOXIN
  11. NYSTATIN. [Concomitant]
     Active Substance: NYSTATIN
  12. TRAMADOL HCL [Concomitant]
     Active Substance: TRAMADOL HYDROCHLORIDE
  13. FLUTICASONE PROPIONATE. [Concomitant]
     Active Substance: FLUTICASONE PROPIONATE
  14. ACETAMINOPHEN AND CODEINE [Concomitant]
     Active Substance: ACETAMINOPHEN\CODEINE PHOSPHATE
  15. ALLOPURINOL. [Concomitant]
     Active Substance: ALLOPURINOL
  16. LIOTHYRONINE [Concomitant]
     Active Substance: LIOTHYRONINE
  17. COLCRYS [Concomitant]
     Active Substance: COLCHICINE
  18. ADVAIR HFA [Concomitant]
     Active Substance: FLUTICASONE PROPIONATE\SALMETEROL XINAFOATE
  19. OMEPRAZOLE. [Concomitant]
     Active Substance: OMEPRAZOLE
  20. ENOXAPARIN [Concomitant]
     Active Substance: ENOXAPARIN

REACTIONS (3)
  - Pyrexia [Recovered/Resolved]
  - Skin infection [Unknown]
  - Localised infection [Recovered/Resolved]
